FAERS Safety Report 9883590 (Version 3)
Quarter: 2014Q1

REPORT INFORMATION
  Report Type: Report from Study
  Country: ES (occurrence: ES)
  Receive Date: 20140210
  Receipt Date: 20140227
  Transmission Date: 20141002
  Serious: Yes (Hospitalization)
  Sender: FDA-Public Use
  Company Number: ES-ROCHE-1207918

PATIENT
  Age: 48 Year
  Sex: Female
  Weight: 67.8 kg

DRUGS (8)
  1. PERTUZUMAB [Suspect]
     Indication: BREAST CANCER METASTATIC
     Dosage: LOADING DOSE  DATE OF LAST DOSE PRIOR TO SAE: 04/MAR/2013
     Route: 042
     Dates: start: 20130304, end: 20130325
  2. PERTUZUMAB [Suspect]
     Dosage: MAINTAINENCE DOSE 420MG ONCE EVERY 3 WEEKS AS PER PROTOCOL.
     Route: 042
     Dates: start: 20130411
  3. TRASTUZUMAB [Suspect]
     Indication: BREAST CANCER METASTATIC
     Dosage: 8MG/KG LOADING DOSE DATE OF LAST DOSE PRIOR TO SAE: 05/MAR/2013
     Route: 042
     Dates: start: 20130305, end: 20130325
  4. TRASTUZUMAB [Suspect]
     Dosage: MAINTAINENCE DOSE 6 MG/KG ONCE EVERY 3 WEEKS AS PER PROTOCOL.
     Route: 042
     Dates: start: 20130411
  5. CAPECITABINE [Suspect]
     Indication: BREAST CANCER METASTATIC
     Dosage: 980MG/M^2. DATE OF LAST DOSE PRIOR TO SAE: 18/MAR/2013
     Route: 048
     Dates: start: 20130305, end: 20130327
  6. CAPECITABINE [Suspect]
     Dosage: REDUCED DOSE
     Route: 048
     Dates: start: 20130411
  7. PAROXETINE [Concomitant]
     Route: 065
     Dates: start: 201211
  8. OMEPRAZOLE [Concomitant]
     Route: 065
     Dates: start: 201203

REACTIONS (1)
  - Clostridium difficile colitis [Recovered/Resolved]
